FAERS Safety Report 9086733 (Version 1)
Quarter: 2013Q1

REPORT INFORMATION
  Report Type: Report from Study
  Country: US (occurrence: US)
  Receive Date: 20130130
  Receipt Date: 20130130
  Transmission Date: 20140127
  Serious: No
  Sender: FDA-Public Use
  Company Number: US-ABBOTT-12P-163-0985527-00

PATIENT
  Age: 47 Year
  Sex: Female

DRUGS (4)
  1. HUMIRA [Suspect]
     Indication: PSORIASIS
     Dates: start: 20120821
  2. CYMBALTA [Concomitant]
     Indication: FIBROMYALGIA
     Dosage: 60 MG DAILY
  3. NEURONTIN [Concomitant]
     Indication: FIBROMYALGIA
  4. ADIPEX [Concomitant]
     Indication: WEIGHT DECREASED
     Dosage: 37.5 MG, 1/2 TAB TWICE A DAY

REACTIONS (2)
  - Injection site reaction [Recovering/Resolving]
  - Headache [Not Recovered/Not Resolved]
